FAERS Safety Report 4628184-0 (Version None)
Quarter: 2005Q2

REPORT INFORMATION
  Report Type: 
  Country: None (occurrence: None)
  Receive Date: 20050406
  Receipt Date: 20050329
  Transmission Date: 20051028
  Serious: Yes (Death)
  Sender: FDA-Public Use
  Company Number: US-SANOFI-SYNTHELABO-A03200500884

PATIENT
  Sex: Female

DRUGS (3)
  1. AMBIEN [Suspect]
     Dosage: UNK
     Route: 048
     Dates: start: 20050310
  2. METHADONE HCL [Suspect]
     Dosage: UNK
     Route: 048
     Dates: start: 20050310
  3. ALCOHOL (BEER) [Suspect]
     Dosage: UNK
     Route: 048
     Dates: start: 20050310

REACTIONS (2)
  - INJURY ASPHYXIATION [None]
  - SOMNOLENCE [None]
